FAERS Safety Report 7715679-6 (Version None)
Quarter: 2011Q3

REPORT INFORMATION
  Report Type: 
  Country: None (occurrence: None)
  Receive Date: 20110829
  Receipt Date: 20110825
  Transmission Date: 20111222
  Serious: Yes (Other)
  Sender: FDA-Public Use
  Company Number: FR-PFIZER INC-2011197404

PATIENT
  Age: 62 Year
  Sex: Male

DRUGS (1)
  1. VARENICLINE TARTRATE [Suspect]
     Indication: SMOKING CESSATION THERAPY
     Dosage: ACCORDING TO THE PROTOCOL

REACTIONS (1)
  - RHABDOMYOLYSIS [None]
